FAERS Safety Report 13663352 (Version 1)
Quarter: 2017Q2

REPORT INFORMATION
  Report Type: Spontaneous
  Country: US (occurrence: US)
  Receive Date: 20170617
  Receipt Date: 20170617
  Transmission Date: 20170830
  Serious: Yes (Hospitalization, Disabling, Other)
  Sender: FDA-Public Use
  Company Number: None

PATIENT
  Age: 61 Year
  Sex: Female
  Weight: 67.95 kg

DRUGS (12)
  1. PAXIL [Concomitant]
     Active Substance: PAROXETINE HYDROCHLORIDE
  2. ASPIRIN. [Concomitant]
     Active Substance: ASPIRIN
  3. METROPOLOL [Concomitant]
     Active Substance: METOPROLOL
  4. ZYRTEC [Concomitant]
     Active Substance: CETIRIZINE HYDROCHLORIDE
  5. BIOTIN [Concomitant]
     Active Substance: BIOTIN
  6. CRESTOR [Concomitant]
     Active Substance: ROSUVASTATIN CALCIUM
  7. VITAMIN D [Concomitant]
     Active Substance: CHOLECALCIFEROL
  8. VITAMIN [Concomitant]
     Active Substance: VITAMINS
  9. BRILINTA [Suspect]
     Active Substance: TICAGRELOR
     Indication: STENT PLACEMENT
     Route: 048
  10. CALCIUM W/K [Concomitant]
  11. RANEXA [Concomitant]
     Active Substance: RANOLAZINE
  12. OMEGA III [Concomitant]

REACTIONS (7)
  - Pain [None]
  - Blood pressure decreased [None]
  - Chest discomfort [None]
  - Headache [None]
  - Therapy change [None]
  - Malaise [None]
  - Chest pain [None]

NARRATIVE: CASE EVENT DATE: 20170529
